FAERS Safety Report 21833690 (Version 1)
Quarter: 2023Q1

REPORT INFORMATION
  Report Type: Report from Study
  Country: US (occurrence: US)
  Receive Date: 20230107
  Receipt Date: 20230107
  Transmission Date: 20230417
  Serious: No
  Sender: FDA-Public Use
  Company Number: US-002147023-NVSC2023US003297

PATIENT
  Sex: Male

DRUGS (2)
  1. COSENTYX [Suspect]
     Active Substance: SECUKINUMAB
     Indication: Psoriasis
     Dosage: 300 MG, QW (2 PENS OF 150 MG/ML FOR THE FIRST 5 WEEKS)
     Route: 058
     Dates: start: 202209
  2. COSENTYX [Suspect]
     Active Substance: SECUKINUMAB
     Dosage: 300 MG, QMO (2 PENS OF 150 MG/ML ONCE EVERY 4 WEEKS)
     Route: 058

REACTIONS (1)
  - Skin disorder [Recovering/Resolving]
